FAERS Safety Report 19920353 (Version 1)
Quarter: 2021Q4

REPORT INFORMATION
  Report Type: Spontaneous
  Country: GB (occurrence: GB)
  Receive Date: 20211005
  Receipt Date: 20211005
  Transmission Date: 20220303
  Serious: Yes (Other)
  Sender: FDA-Public Use
  Company Number: None

PATIENT
  Age: 55 Year
  Sex: Female
  Weight: 72.6 kg

DRUGS (5)
  1. CITALOPRAM [Suspect]
     Active Substance: CITALOPRAM HYDROBROMIDE
     Indication: Product used for unknown indication
     Dosage: 30 MILLIGRAM, QD
     Dates: start: 20210906, end: 20210915
  2. LANSOPRAZOLE [Concomitant]
     Active Substance: LANSOPRAZOLE
     Dosage: 1 DOSAGE FORM, AM
     Dates: start: 20210809
  3. MOMETASONE [Concomitant]
     Active Substance: MOMETASONE
     Indication: Cough
     Dosage: 50 MICROGRAM, BID,  TWO SPRAYS
     Route: 045
     Dates: start: 20210726, end: 20210824
  4. MOMETASONE [Concomitant]
     Active Substance: MOMETASONE
     Dosage: 50 MICROGRAM, BID,  TWO SPRAYS
     Route: 045
     Dates: start: 20210908
  5. ALBUTEROL [Concomitant]
     Active Substance: ALBUTEROL
     Indication: Cough
     Dosage: 100 MICROGRAM, PRN, 2 PUFFS
     Dates: start: 20210908

REACTIONS (1)
  - Colitis microscopic [Unknown]
